FAERS Safety Report 6101618-0 (Version None)
Quarter: 2009Q1

REPORT INFORMATION
  Report Type: 
  Country: None (occurrence: None)
  Receive Date: 20090303
  Receipt Date: 20090303
  Transmission Date: 20090719
  Serious: Yes (Life-Threatening, Disabling)
  Sender: FDA-Public Use
  Company Number: None

PATIENT
  Age: 70 Year
  Sex: Female
  Weight: 77.1115 kg

DRUGS (1)
  1. LIPITOR [Suspect]
     Indication: BLOOD CHOLESTEROL INCREASED
     Dates: start: 20081028, end: 20081103

REACTIONS (6)
  - CHILLS [None]
  - FEELING ABNORMAL [None]
  - FLUID INTAKE REDUCED [None]
  - HEPATITIS [None]
  - HYPOPHAGIA [None]
  - PAIN [None]
